FAERS Safety Report 25453745 (Version 1)
Quarter: 2025Q2

REPORT INFORMATION
  Report Type: Spontaneous
  Country: CH (occurrence: CH)
  Receive Date: 20250619
  Receipt Date: 20250619
  Transmission Date: 20250717
  Serious: Yes (Other)
  Sender: NOVO NORDISK
  Company Number: None

PATIENT
  Age: 31 Year
  Sex: Female
  Weight: 145 kg

DRUGS (9)
  1. WEGOVY [Suspect]
     Active Substance: SEMAGLUTIDE
     Dosage: 2.4 MG, QW
     Route: 058
     Dates: start: 20240914
  2. WEGOVY [Suspect]
     Active Substance: SEMAGLUTIDE
     Indication: Obesity
     Dosage: 0.25 MG, QW
     Route: 058
     Dates: start: 20240525
  3. WEGOVY [Suspect]
     Active Substance: SEMAGLUTIDE
     Route: 058
     Dates: end: 20240907
  4. ALACIR [Concomitant]
     Indication: Depression
     Route: 048
     Dates: start: 201609
  5. ALACIR [Concomitant]
     Route: 048
     Dates: start: 20250407
  6. ALACIR [Concomitant]
     Route: 048
     Dates: start: 201703
  7. QUETIAPINE [Concomitant]
     Active Substance: QUETIAPINE
     Indication: Sleep disorder
     Dosage: 25 MG, QD
     Route: 048
     Dates: end: 202502
  8. Redormin [Concomitant]
     Indication: Sleep disorder
     Route: 048
     Dates: start: 202502
  9. BURGERSTEIN MAGNESIUMOROTAT [Concomitant]
     Indication: Product used for unknown indication
     Dates: start: 201702

REACTIONS (1)
  - Noninfective chorioretinitis [Not Recovered/Not Resolved]

NARRATIVE: CASE EVENT DATE: 20240930
